FAERS Safety Report 10689772 (Version 1)
Quarter: 2015Q1

REPORT INFORMATION
  Report Type: Spontaneous
  Country: US (occurrence: US)
  Receive Date: 20150105
  Receipt Date: 20150105
  Transmission Date: 20150720
  Serious: No
  Sender: FDA-Public Use
  Company Number: US-PFIZER INC-2015000139

PATIENT
  Age: 62 Year
  Sex: Female
  Weight: 82 kg

DRUGS (4)
  1. SYNTHROID [Concomitant]
     Active Substance: LEVOTHYROXINE SODIUM
     Indication: THYROID DISORDER
     Dosage: 100 ?G, 1X/DAY
  2. ASMANEX [Concomitant]
     Active Substance: MOMETASONE FUROATE
     Dosage: 2 DF, 1X/DAY EVERY NIGHT
     Route: 055
  3. EFFEXOR XR [Suspect]
     Active Substance: VENLAFAXINE HYDROCHLORIDE
     Dosage: 150 MG, DAILY (IN THE MORNING)
     Dates: start: 2010
  4. SIMVASTATIN. [Concomitant]
     Active Substance: SIMVASTATIN
     Indication: BLOOD CHOLESTEROL ABNORMAL
     Dosage: 40 MG, DAILY

REACTIONS (5)
  - Headache [Not Recovered/Not Resolved]
  - Insomnia [Not Recovered/Not Resolved]
  - Mental disorder [Not Recovered/Not Resolved]
  - Hypoacusis [Unknown]
  - Drug withdrawal syndrome [Unknown]

NARRATIVE: CASE EVENT DATE: 20141127
